FAERS Safety Report 7759528-9 (Version None)
Quarter: 2011Q3

REPORT INFORMATION
  Report Type: 
  Country: None (occurrence: None)
  Receive Date: 20110919
  Receipt Date: 20110919
  Transmission Date: 20111222
  Serious: Yes (Other)
  Sender: FDA-Public Use
  Company Number: None

PATIENT
  Age: 55 Year
  Sex: Female
  Weight: 49.895 kg

DRUGS (1)
  1. FENTANYL [Suspect]
     Indication: FIBROMYALGIA
     Dosage: 1 PATCH
     Route: 062
     Dates: start: 20110904, end: 20110918

REACTIONS (4)
  - ASTHENIA [None]
  - FATIGUE [None]
  - SEDATION [None]
  - BODY TEMPERATURE INCREASED [None]
